FAERS Safety Report 4699926-3 (Version None)
Quarter: 2005Q2

REPORT INFORMATION
  Report Type: 
  Country: None (occurrence: None)
  Receive Date: 20050623
  Receipt Date: 20050609
  Transmission Date: 20051028
  Serious: Yes (Hospitalization)
  Sender: FDA-Public Use
  Company Number: T05-CHN-00728-01

PATIENT
  Age: 74 Year
  Sex: Female
  Weight: 62 kg

DRUGS (5)
  1. MEMANTINE HCL [Suspect]
     Indication: DEMENTIA ALZHEIMER'S TYPE
     Dosage: 20 MG QD PO
     Route: 048
     Dates: start: 20040701, end: 20050121
  2. TANG XIN LUE (CHINESE MEDICATION) [Concomitant]
  3. OKEBDUK *FEKIDUOUBE( [Concomitant]
  4. HYDERGINE [Concomitant]
  5. GINKO (HERBAL) [Concomitant]

REACTIONS (3)
  - CEREBRAL ATROPHY [None]
  - CEREBRAL INFARCTION [None]
  - CEREBRAL THROMBOSIS [None]
